FAERS Safety Report 4784530-9 (Version None)
Quarter: 2005Q3

REPORT INFORMATION
  Report Type: 
  Country: None (occurrence: None)
  Receive Date: 20050930
  Receipt Date: 20050924
  Transmission Date: 20060218
  Serious: Yes (Other)
  Sender: FDA-Public Use
  Company Number: GB-GLAXOSMITHKLINE-B0394928A

PATIENT
  Age: 68 Year
  Sex: Female
  Weight: 97 kg

DRUGS (4)
  1. RANITIDINE [Suspect]
     Indication: DYSPEPSIA
     Dosage: 150MG TWICE PER DAY
     Route: 048
     Dates: start: 20050801, end: 20050907
  2. FUROSEMIDE [Concomitant]
     Indication: HYPERTENSION
     Route: 048
     Dates: start: 20040101
  3. PERINDOPRIL [Concomitant]
     Indication: HYPERTENSION
     Route: 048
     Dates: start: 19910101
  4. LEVOTHYROXINE SODIUM [Concomitant]
     Indication: HYPOTHYROIDISM
     Dosage: 100MG UNKNOWN
     Route: 048
     Dates: start: 19900101

REACTIONS (2)
  - HYPERHIDROSIS [None]
  - MYALGIA [None]
